FAERS Safety Report 15598304 (Version 1)
Quarter: 2018Q4

REPORT INFORMATION
  Report Type: Spontaneous
  Country: US (occurrence: US)
  Receive Date: 20181108
  Receipt Date: 20181108
  Transmission Date: 20190205
  Serious: Yes (Other)
  Sender: FDA-Public Use
  Company Number: US-SA-2018SA305130

PATIENT
  Age: 57 Year
  Sex: Male

DRUGS (14)
  1. METHOTREXATE. [Suspect]
     Active Substance: METHOTREXATE
     Indication: RHEUMATOID ARTHRITIS
  2. XELJANZ XR [Suspect]
     Active Substance: TOFACITINIB CITRATE
     Indication: RHEUMATOID ARTHRITIS
     Dosage: 11 MG, QD
     Route: 048
     Dates: start: 2016
  3. LEFLUNOMIDE. [Suspect]
     Active Substance: LEFLUNOMIDE
     Indication: RHEUMATOID ARTHRITIS
  4. REMICADE [Suspect]
     Active Substance: INFLIXIMAB
     Indication: RHEUMATOID ARTHRITIS
     Dosage: UNK
  5. PREDNISONE. [Concomitant]
     Active Substance: PREDNISONE
     Indication: RHEUMATOID ARTHRITIS
  6. ENBREL [Suspect]
     Active Substance: ETANERCEPT
     Indication: RHEUMATOID ARTHRITIS
     Dosage: 25 MG, QW
  7. SIMPONI ARIA [Suspect]
     Active Substance: GOLIMUMAB
     Indication: RHEUMATOID ARTHRITIS
  8. CLONAZEPAM. [Suspect]
     Active Substance: CLONAZEPAM
     Indication: ANXIETY
     Dosage: 2 MG, HS
     Route: 048
  9. SIROLIMUS. [Concomitant]
     Active Substance: SIROLIMUS
     Indication: RHEUMATOID ARTHRITIS
  10. DAPSONE. [Concomitant]
     Active Substance: DAPSONE
     Indication: RHEUMATOID ARTHRITIS
  11. SIMVASTATIN. [Concomitant]
     Active Substance: SIMVASTATIN
     Indication: RHEUMATOID ARTHRITIS
  12. DOFETILIDE. [Concomitant]
     Active Substance: DOFETILIDE
     Indication: RHEUMATOID ARTHRITIS
  13. CYCLOSPORINE. [Concomitant]
     Active Substance: CYCLOSPORINE
     Indication: RHEUMATOID ARTHRITIS
  14. BACTRIM [Concomitant]
     Active Substance: SULFAMETHOXAZOLE\TRIMETHOPRIM
     Indication: RHEUMATOID ARTHRITIS

REACTIONS (4)
  - Feeling abnormal [Unknown]
  - Atrial fibrillation [Recovering/Resolving]
  - Cardiac flutter [Unknown]
  - Treatment failure [Unknown]

NARRATIVE: CASE EVENT DATE: 201702
